FAERS Safety Report 7509936-6 (Version None)
Quarter: 2011Q2

REPORT INFORMATION
  Report Type: 
  Country: None (occurrence: None)
  Receive Date: 20110527
  Receipt Date: 20110113
  Transmission Date: 20111010
  Serious: Yes (Other)
  Sender: FDA-Public Use
  Company Number: PHHY2010FR87043

PATIENT
  Sex: Female

DRUGS (2)
  1. SANDOSTATIN LAR [Suspect]
     Indication: ACROMEGALY
     Dosage: 20 MG,
     Dates: start: 19981101
  2. SANDOSTATIN LAR [Suspect]
     Dosage: 30 MG,
     Dates: start: 19981101, end: 19990401

REACTIONS (2)
  - INDUCED LABOUR [None]
  - DRUG EXPOSURE DURING PREGNANCY [None]
